FAERS Safety Report 25485284 (Version 1)
Quarter: 2025Q2

REPORT INFORMATION
  Report Type: Spontaneous
  Country: FR (occurrence: FR)
  Receive Date: 20250626
  Receipt Date: 20250626
  Transmission Date: 20250717
  Serious: Yes (Other)
  Sender: MYLAN
  Company Number: None

PATIENT
  Age: 22 Year
  Sex: Female

DRUGS (6)
  1. TRAMADOL [Suspect]
     Active Substance: TRAMADOL
     Indication: Product used for unknown indication
  2. ALPRAZOLAM [Suspect]
     Active Substance: ALPRAZOLAM
     Indication: Product used for unknown indication
     Dosage: 4 MILLIGRAM, QD (4 MG/DAY)
     Dates: start: 2023, end: 2025
  3. ALPRAZOLAM [Suspect]
     Active Substance: ALPRAZOLAM
     Dosage: 1.5 MILLIGRAM, QD (1.5 MG/DAY)
     Dates: start: 2025
  4. KETAMINE [Suspect]
     Active Substance: KETAMINE
     Indication: Product used for unknown indication
     Dosage: UNK, MONTHLY (CURRENTLY ONCE A MONTH)
  5. CANNABIS SATIVA SUBSP. INDICA TOP [Suspect]
     Active Substance: CANNABIS SATIVA SUBSP. INDICA TOP
     Indication: Product used for unknown indication
  6. VENLAFAXINE [Concomitant]
     Active Substance: VENLAFAXINE HYDROCHLORIDE
     Dosage: 150 MILLIGRAM, QD

REACTIONS (5)
  - Hyperlactacidaemia [Recovering/Resolving]
  - Generalised tonic-clonic seizure [Recovered/Resolved]
  - Tachycardia [Recovered/Resolved]
  - Sleep disorder [Recovering/Resolving]
  - Drug abuse [Not Recovered/Not Resolved]

NARRATIVE: CASE EVENT DATE: 20250507
